FAERS Safety Report 16600059 (Version 2)
Quarter: 2019Q3

REPORT INFORMATION
  Report Type: Report from Study
  Country: CO (occurrence: CO)
  Receive Date: 20190720
  Receipt Date: 20190813
  Transmission Date: 20191004
  Serious: Yes (Death, Life-Threatening, Hospitalization, Other)
  Sender: FDA-Public Use
  Company Number: CO-AMGEN-COLSL2019114711

PATIENT
  Age: 24 Year
  Sex: Male

DRUGS (2)
  1. BLINCYTO [Suspect]
     Active Substance: BLINATUMOMAB
     Indication: PHILADELPHIA CHROMOSOME NEGATIVE
  2. BLINCYTO [Suspect]
     Active Substance: BLINATUMOMAB
     Indication: ACUTE LYMPHOCYTIC LEUKAEMIA
     Dosage: 9 MICROGRAM, QD
     Route: 042
     Dates: start: 20190629, end: 20190706

REACTIONS (4)
  - Hepatitis [Not Recovered/Not Resolved]
  - Spleen disorder [Not Recovered/Not Resolved]
  - Cholecystitis [Not Recovered/Not Resolved]
  - Death [Fatal]

NARRATIVE: CASE EVENT DATE: 2019
